FAERS Safety Report 8470185-9 (Version None)
Quarter: 2012Q2

REPORT INFORMATION
  Report Type: 
  Country: None (occurrence: None)
  Receive Date: 20120621
  Receipt Date: 20120621
  Transmission Date: 20120825
  Serious: Yes (Hospitalization)
  Sender: FDA-Public Use
  Company Number: None

PATIENT
  Age: 50 Year
  Sex: Female
  Weight: 85.7298 kg

DRUGS (2)
  1. STRATTERA [Suspect]
     Indication: PSYCHOMOTOR HYPERACTIVITY
     Dosage: 80 MG 1 PO
     Route: 048
     Dates: start: 20120523, end: 20120606
  2. STRATTERA [Suspect]
     Indication: PSYCHOMOTOR HYPERACTIVITY
     Dosage: 80 MG 1 PO
     Route: 048
     Dates: start: 20111130, end: 20120517

REACTIONS (9)
  - PRESYNCOPE [None]
  - INSOMNIA [None]
  - PARANOIA [None]
  - LIVER FUNCTION TEST ABNORMAL [None]
  - GASTROOESOPHAGEAL REFLUX DISEASE [None]
  - NO THERAPEUTIC RESPONSE [None]
  - FEAR [None]
  - IMPAIRED WORK ABILITY [None]
  - HYPERSENSITIVITY [None]
